FAERS Safety Report 11609250 (Version 1)
Quarter: 2015Q4

REPORT INFORMATION
  Report Type: Spontaneous
  Country: FI (occurrence: FI)
  Receive Date: 20151007
  Receipt Date: 20151007
  Transmission Date: 20160304
  Serious: Yes (Death)
  Sender: FDA-Public Use
  Company Number: FI-EDGEMONT-2015EDG00036

PATIENT
  Sex: Female
  Weight: 1.9 kg

DRUGS (3)
  1. SEROQUEL [Suspect]
     Active Substance: QUETIAPINE FUMARATE
     Route: 064
  2. SERONIL (FLUOXETINE) 20 MG [Suspect]
     Active Substance: FLUOXETINE HYDROCHLORIDE
     Route: 064
  3. ANAFRANIL [Suspect]
     Active Substance: CLOMIPRAMINE HYDROCHLORIDE
     Route: 064

REACTIONS (7)
  - Foetal exposure during pregnancy [Fatal]
  - Umbilical cord around neck [Fatal]
  - Maternal hypertension affecting foetus [Fatal]
  - Maternal drugs affecting foetus [None]
  - Foetal distress syndrome [Fatal]
  - Foetal growth restriction [Fatal]
  - Foetal death [Fatal]

NARRATIVE: CASE EVENT DATE: 201401
